FAERS Safety Report 8598079-9 (Version None)
Quarter: 2012Q3

REPORT INFORMATION
  Report Type: 
  Country: None (occurrence: None)
  Receive Date: 20120816
  Receipt Date: 20120810
  Transmission Date: 20120928
  Serious: Yes (Hospitalization, Other)
  Sender: FDA-Public Use
  Company Number: CA-ABBOTT-12P-028-0962838-00

PATIENT
  Sex: Male
  Weight: 52.21 kg

DRUGS (4)
  1. PURINETHOL [Concomitant]
     Indication: PRODUCT USED FOR UNKNOWN INDICATION
     Dosage: WAS STOPPED CYTOMEGA-LOVIRUS POSITIVE
  2. PREDNISONE TAB [Concomitant]
     Indication: PRODUCT USED FOR UNKNOWN INDICATION
     Dosage: DECREASING DOSES
  3. HUMIRA [Suspect]
     Indication: PRODUCT USED FOR UNKNOWN INDICATION
     Dosage: 1 DOSE
     Dates: start: 20120426
  4. PURINETHOL [Concomitant]
     Dates: start: 20120522

REACTIONS (5)
  - CYTOMEGALOVIRUS TEST POSITIVE [None]
  - PNEUMATOSIS INTESTINALIS [None]
  - COLITIS [None]
  - ANAEMIA [None]
  - CROHN'S DISEASE [None]
